FAERS Safety Report 9440545 (Version 1)
Quarter: 2013Q3

REPORT INFORMATION
  Report Type: Spontaneous
  Country: US (occurrence: US)
  Receive Date: 20130805
  Receipt Date: 20130805
  Transmission Date: 20140515
  Serious: Yes (Hospitalization)
  Sender: FDA-Public Use
  Company Number: US-ELI_LILLY_AND_COMPANY-US201306007332

PATIENT
  Age: 56 Year
  Sex: Female
  Weight: 76.19 kg

DRUGS (12)
  1. EFFIENT [Suspect]
     Indication: CORONARY ARTERY DISEASE
     Dosage: 10 MG, QD
     Dates: start: 20120630
  2. ZOLOFT [Concomitant]
     Dosage: 200 MG, QD
  3. ZOLOFT [Concomitant]
     Dosage: 100 MG, BID
  4. WELLBUTRIN XL [Concomitant]
     Dosage: 300 MG, QD
  5. CLARINEX                           /01398501/ [Concomitant]
     Dosage: 5 MG, PRN
  6. ASA [Concomitant]
     Dosage: 325 MG, QD
  7. PRINIVIL [Concomitant]
     Dosage: 5 MG, QD
  8. LOPRESSOR [Concomitant]
     Dosage: 12.5 MG, BID
  9. LIPITOR [Concomitant]
     Dosage: 80 MG, EACH EVENING
  10. TYLENOL                            /00020001/ [Concomitant]
     Dosage: 650 MG, EVERY 4 HRS
  11. PREMARIN [Concomitant]
     Indication: HORMONE REPLACEMENT THERAPY
     Dosage: 0.3 MG, QD
     Route: 067
  12. AMOXICILLIN [Concomitant]
     Indication: SINUSITIS

REACTIONS (1)
  - Angina pectoris [Unknown]
